FAERS Safety Report 4955377-5 (Version None)
Quarter: 2006Q1

REPORT INFORMATION
  Report Type: 
  Country: None (occurrence: None)
  Receive Date: 20060322
  Receipt Date: 20060308
  Transmission Date: 20060701
  Serious: Yes (Hospitalization)
  Sender: FDA-Public Use
  Company Number: CLOF-10205

PATIENT
  Age: 67 Year
  Sex: Male
  Weight: 85.1 kg

DRUGS (21)
  1. CLOFARABINE [Suspect]
     Indication: ACUTE MYELOID LEUKAEMIA
     Dosage: 47.7 MG IV
     Route: 042
     Dates: start: 20060128, end: 20060201
  2. CYSTOSINE ARABINOSIDE [Suspect]
     Indication: ACUTE MYELOID LEUKAEMIA
     Dosage: 212 MG ONCE IV
     Route: 042
     Dates: start: 20060127, end: 20060201
  3. ACYCLOVIR [Concomitant]
  4. NEXIUM [Concomitant]
  5. MULTI-VITAMIN [Concomitant]
  6. ISOSORBIDE [Concomitant]
  7. FLOMAX [Concomitant]
  8. LESCOL [Concomitant]
  9. SPIRIVA [Concomitant]
  10. ADVAIR DISKUS 100/50 [Concomitant]
  11. NICOTINE [Concomitant]
  12. HYDROCHLOROTHIAZIDE [Concomitant]
  13. GM-CSF [Concomitant]
  14. AVANDAMET [Concomitant]
  15. MAGNESIUM OXIDE [Concomitant]
  16. K-DUR 10 [Concomitant]
  17. ALBUTEROL [Concomitant]
  18. OXYCODONE [Concomitant]
  19. DEXAMETHASONE TAB [Concomitant]
  20. CYSTOSINE ARABINOSIDE [Concomitant]
  21. TOPROL-XL [Concomitant]

REACTIONS (25)
  - ABDOMINAL TENDERNESS [None]
  - ARTHRALGIA [None]
  - ASTHENIA [None]
  - BONE PAIN [None]
  - CYANOSIS [None]
  - DYSPNOEA [None]
  - FATIGUE [None]
  - FEBRILE NEUTROPENIA [None]
  - HEADACHE [None]
  - HYPERGLYCAEMIA [None]
  - HYPOTENSION [None]
  - MALAISE [None]
  - MARROW HYPERPLASIA [None]
  - MUCOSAL INFLAMMATION [None]
  - MYALGIA [None]
  - NAUSEA [None]
  - PULMONARY OEDEMA [None]
  - RALES [None]
  - RESPIRATORY DISTRESS [None]
  - RESTLESSNESS [None]
  - SEPSIS [None]
  - THERAPY NON-RESPONDER [None]
  - VOMITING [None]
  - WEIGHT DECREASED [None]
  - WHEEZING [None]
